FAERS Safety Report 13178359 (Version 2)
Quarter: 2017Q1

REPORT INFORMATION
  Report Type: Report from Study
  Country: JP (occurrence: JP)
  Receive Date: 20170202
  Receipt Date: 20170212
  Transmission Date: 20170428
  Serious: Yes (Other)
  Sender: FDA-Public Use
  Company Number: JP-AMGEN-JPNSP2017016922

PATIENT
  Age: 73 Year

DRUGS (11)
  1. CINACALCET HCL [Suspect]
     Active Substance: CINACALCET HYDROCHLORIDE
     Dosage: 75 MG, QD
     Route: 048
     Dates: start: 20160801, end: 20160807
  2. CINACALCET HCL [Suspect]
     Active Substance: CINACALCET HYDROCHLORIDE
     Dosage: 75 MG, QD
     Route: 048
     Dates: start: 20160815, end: 20161009
  3. CINACALCET HCL [Suspect]
     Active Substance: CINACALCET HYDROCHLORIDE
     Dosage: 75 MG, QD
     Route: 048
     Dates: start: 20161017
  4. CINACALCET HCL [Suspect]
     Active Substance: CINACALCET HYDROCHLORIDE
     Dosage: 75 MG, QD
     Route: 048
     Dates: start: 20160627, end: 20160717
  5. CINACALCET HCL [Suspect]
     Active Substance: CINACALCET HYDROCHLORIDE
     Dosage: 50 MG, QD
     Route: 048
     Dates: start: 20160502, end: 20160612
  6. CINACALCET HCL [Suspect]
     Active Substance: CINACALCET HYDROCHLORIDE
     Dosage: 64 MG, QD
     Route: 048
     Dates: start: 20160718, end: 20160731
  7. CINACALCET HCL [Suspect]
     Active Substance: CINACALCET HYDROCHLORIDE
     Dosage: 64 MG, QD
     Route: 048
     Dates: start: 20161010, end: 20161016
  8. CINACALCET HCL [Suspect]
     Active Substance: CINACALCET HYDROCHLORIDE
     Dosage: 75 MG, QD
     Route: 048
     Dates: start: 20160613, end: 20160619
  9. CINACALCET HCL [Suspect]
     Active Substance: CINACALCET HYDROCHLORIDE
     Indication: PRODUCT USED FOR UNKNOWN INDICATION
     Dosage: 25 MG, QD
     Route: 048
     Dates: start: 20160328, end: 20160501
  10. CINACALCET HCL [Suspect]
     Active Substance: CINACALCET HYDROCHLORIDE
     Dosage: 64 MG, QD
     Route: 048
     Dates: start: 20160620, end: 20160626
  11. CINACALCET HCL [Suspect]
     Active Substance: CINACALCET HYDROCHLORIDE
     Dosage: 64 MG, QD
     Route: 048
     Dates: start: 20160808, end: 20160814

REACTIONS (6)
  - Neck pain [Recovered/Resolved]
  - Retinal tear [Recovered/Resolved]
  - Arthralgia [Recovering/Resolving]
  - Abdominal discomfort [Recovered/Resolved]
  - Osteoarthritis [Recovering/Resolving]
  - Thermal burn [Recovered/Resolved]

NARRATIVE: CASE EVENT DATE: 20160422
